FAERS Safety Report 25601830 (Version 4)
Quarter: 2025Q4

REPORT INFORMATION
  Report Type: Spontaneous
  Country: CA (occurrence: CA)
  Receive Date: 20250724
  Receipt Date: 20251015
  Transmission Date: 20260118
  Serious: Yes (Other)
  Sender: PFIZER
  Company Number: CA-PFIZER INC-202500002619

PATIENT
  Age: 52 Year
  Sex: Female
  Weight: 94 kg

DRUGS (9)
  1. GENOTROPIN [Suspect]
     Active Substance: SOMATROPIN
     Indication: Growth hormone deficiency
     Dosage: UNK
     Dates: start: 20150513
  2. GENOTROPIN [Suspect]
     Active Substance: SOMATROPIN
     Dosage: 1 DF, DAILY, 0.8 MG/DAY, 7 DAYS A WEEK
     Route: 058
     Dates: start: 20230418, end: 2024
  3. GENOTROPIN [Suspect]
     Active Substance: SOMATROPIN
     Dosage: 1 DF, DAILY, 0.8 MG/DAY, 7 DAYS A WEEK
     Route: 058
     Dates: start: 2024
  4. HYDROCORTISONE [Concomitant]
     Active Substance: HYDROCORTISONE
     Dosage: UNK
  5. FLUDROCORTISONE [Concomitant]
     Active Substance: FLUDROCORTISONE
     Indication: Adrenal insufficiency
     Dosage: 0.15 MG, DAILY
  6. HYDROCORTISONE [Concomitant]
     Active Substance: HYDROCORTISONE
     Indication: Adrenal insufficiency
     Dosage: UNK MG, DAILY, (20-10)
  7. JANUMET [Concomitant]
     Active Substance: METFORMIN HYDROCHLORIDE\SITAGLIPTIN PHOSPHATE
     Indication: Diabetes mellitus
     Dosage: UNK, (1000/50 BID)
  8. PERINDOPRIL [Concomitant]
     Active Substance: PERINDOPRIL
     Dosage: UNK
  9. ERGOCALCIFEROL [Concomitant]
     Active Substance: ERGOCALCIFEROL
     Dosage: UNK

REACTIONS (2)
  - Renal failure [Recovered/Resolved]
  - Blood pressure abnormal [Recovered/Resolved]

NARRATIVE: CASE EVENT DATE: 20250601
